FAERS Safety Report 7769684-4 (Version None)
Quarter: 2011Q3

REPORT INFORMATION
  Report Type: 
  Country: None (occurrence: None)
  Receive Date: 20110922
  Receipt Date: 20100826
  Transmission Date: 20111222
  Serious: Yes (Other)
  Sender: FDA-Public Use
  Company Number: US-ASTRAZENECA-2007UW25116

PATIENT
  Age: 34 Year
  Sex: Male
  Weight: 104.3 kg

DRUGS (38)
  1. SEROQUEL [Suspect]
     Route: 048
     Dates: start: 20030101
  2. SEROQUEL [Suspect]
     Route: 048
     Dates: start: 20030101
  3. SEROQUEL [Suspect]
     Dosage: 100 MG AM AND 200 MG
     Route: 048
     Dates: start: 20040527
  4. SEROQUEL [Suspect]
     Route: 048
     Dates: start: 20040101, end: 20050101
  5. THORAZINE [Concomitant]
     Dates: start: 19900101
  6. SEROQUEL [Suspect]
     Dosage: 100 MG AM AND 200 MG
     Route: 048
     Dates: start: 20040527
  7. SEROQUEL [Suspect]
     Indication: INSOMNIA
     Route: 048
     Dates: start: 19920101, end: 19940101
  8. SEROQUEL [Suspect]
     Route: 048
     Dates: start: 19980101, end: 20020101
  9. SEROQUEL [Suspect]
     Route: 048
     Dates: start: 19980101, end: 20020101
  10. SEROQUEL [Suspect]
     Route: 048
     Dates: start: 20030101, end: 20061201
  11. SEROQUEL [Suspect]
     Route: 048
     Dates: start: 20030101, end: 20061201
  12. SEROQUEL [Suspect]
     Route: 048
     Dates: start: 20030101, end: 20061201
  13. SEROQUEL [Suspect]
     Dosage: 200 MG AM AND HS
     Route: 048
     Dates: start: 20040529
  14. GEODON [Concomitant]
  15. HALDOL [Concomitant]
     Dates: start: 19980101, end: 20020101
  16. SEROQUEL [Suspect]
     Indication: SCHIZOPHRENIA
     Route: 048
     Dates: start: 19920101, end: 19940101
  17. SEROQUEL [Suspect]
     Route: 048
     Dates: start: 20041020
  18. ZYPREXA [Concomitant]
     Indication: SCHIZOPHRENIA
     Dates: start: 19920101, end: 19940101
  19. ABILIFY [Concomitant]
     Indication: PSYCHOTIC DISORDER
     Dates: start: 20041020
  20. SEROQUEL [Suspect]
     Indication: DEPRESSION
     Route: 048
     Dates: start: 19920101, end: 19940101
  21. SEROQUEL [Suspect]
     Route: 048
     Dates: start: 20030101
  22. ZYPREXA [Concomitant]
     Dates: start: 20030101, end: 20040101
  23. SEROQUEL [Suspect]
     Route: 048
     Dates: start: 19980101, end: 20020101
  24. SEROQUEL [Suspect]
     Dosage: 100 MG AM AND 200 MG
     Route: 048
     Dates: start: 20040527
  25. SEROQUEL [Suspect]
     Dosage: 200 MG AM AND HS
     Route: 048
     Dates: start: 20040529
  26. SEROQUEL [Suspect]
     Route: 048
     Dates: start: 20041020
  27. SEROQUEL [Suspect]
     Route: 048
     Dates: start: 20041020
  28. SEROQUEL [Suspect]
     Route: 048
     Dates: start: 20040101, end: 20050101
  29. RISPERDAL [Concomitant]
     Indication: SCHIZOPHRENIA
     Dates: start: 19980101, end: 20020101
  30. SEROQUEL [Suspect]
     Dosage: 100 MG AM AND HS
     Route: 048
     Dates: start: 20040526
  31. RISPERDAL [Concomitant]
     Dosage: FOR 3 MONTHS
     Dates: start: 20030101, end: 20040101
  32. ZYPREXA [Concomitant]
     Dates: start: 19980101, end: 20020101
  33. SEROQUEL [Suspect]
     Dosage: 100 MG AM AND HS
     Route: 048
     Dates: start: 20040526
  34. SEROQUEL [Suspect]
     Dosage: 100 MG AM AND HS
     Route: 048
     Dates: start: 20040526
  35. SEROQUEL [Suspect]
     Dosage: 200 MG AM AND HS
     Route: 048
     Dates: start: 20040529
  36. SEROQUEL [Suspect]
     Route: 048
     Dates: start: 20040101, end: 20050101
  37. ZYPREXA [Concomitant]
     Dates: start: 20040101, end: 20050101
  38. VISTARIL [Concomitant]
     Indication: ANXIETY
     Dates: start: 20041020

REACTIONS (7)
  - TYPE 2 DIABETES MELLITUS [None]
  - PANCREATITIS [None]
  - DIABETIC COMPLICATION [None]
  - BLOOD CHOLESTEROL INCREASED [None]
  - HYPERLIPIDAEMIA [None]
  - CHOLELITHIASIS [None]
  - OBESITY [None]
